FAERS Safety Report 6157026-X (Version None)
Quarter: 2009Q2

REPORT INFORMATION
  Report Type: 
  Country: None (occurrence: None)
  Receive Date: 20090413
  Receipt Date: 20090402
  Transmission Date: 20091009
  Serious: Yes (Other)
  Sender: FDA-Public Use
  Company Number: GXKR2009GB04267

PATIENT
  Age: 78 Year
  Sex: Female
  Weight: 77 kg

DRUGS (11)
  1. OMEPRAZOLE [Suspect]
     Indication: PROPHYLAXIS AGAINST GASTROINTESTINAL ULCER
     Dosage: 20 MG, ORAL
     Route: 048
     Dates: start: 19990101, end: 20090220
  2. ACETYLSALICYLIC ACID (ACETYLSALICYLIC ACID) [Concomitant]
  3. CALCICHEW (CALCIUM CARBONATE) [Concomitant]
  4. FERROUS SULPHATE (FERROUS SULFATE) [Concomitant]
  5. ISOSORBIDE MONONITRATE [Concomitant]
  6. SIMVASTATIN [Concomitant]
  7. TIOTROPIUM BROMIDE (TIOTROPIUM BROMIDE) [Concomitant]
  8. BUDESONIDE W/FORMOTEROL FUMARATE (BUDESONIDE, FORMOTEROL FUMARATE) [Concomitant]
  9. THEOPHYLLINE [Concomitant]
  10. MAGNESIUM SUPPLEMENTS (MAGNESIUM) [Concomitant]
  11. CALCIUM (CALCIUM) [Concomitant]

REACTIONS (9)
  - ATRIAL FIBRILLATION [None]
  - CHRONIC OBSTRUCTIVE PULMONARY DISEASE [None]
  - CONDITION AGGRAVATED [None]
  - DIARRHOEA [None]
  - DYSPNOEA [None]
  - HYPOCALCAEMIA [None]
  - HYPOKALAEMIA [None]
  - HYPOMAGNESAEMIA [None]
  - PRODUCTIVE COUGH [None]
